FAERS Safety Report 8419575-0 (Version None)
Quarter: 2012Q2

REPORT INFORMATION
  Report Type: 
  Country: None (occurrence: None)
  Receive Date: 20120607
  Receipt Date: 20120604
  Transmission Date: 20120825
  Serious: Yes (Hospitalization)
  Sender: FDA-Public Use
  Company Number: US-ROCHE-1075846

PATIENT
  Age: 82 Year
  Sex: Female

DRUGS (1)
  1. ERIVEDGE [Suspect]
     Indication: PRODUCT USED FOR UNKNOWN INDICATION
     Route: 065
     Dates: start: 20120330

REACTIONS (4)
  - PNEUMONIA [None]
  - PULMONARY EMBOLISM [None]
  - RESPIRATORY DISTRESS [None]
  - CARDIAC FAILURE CONGESTIVE [None]
